FAERS Safety Report 8901180 (Version 1)
Quarter: 2012Q4

REPORT INFORMATION
  Report Type: 
  Country: US (occurrence: US)
  Receive Date: 20121109
  Receipt Date: 20121109
  Transmission Date: 20130627
  Serious: No
  Sender: FDA-Public Use
  Company Number: US-PFIZER INC-2012277243

PATIENT
  Age: 68 Year
  Sex: Male
  Weight: 104 kg

DRUGS (4)
  1. SUTENT [Suspect]
     Dosage: 50 mg, UNK
     Dates: start: 201206
  2. HYDROCODONE [Concomitant]
     Indication: FOOT PAIN
     Dosage: UNK
  3. GABAPENTIN [Concomitant]
     Dosage: 300 mg, five times per day
  4. ACETYLSALICYLIC ACID [Concomitant]
     Dosage: 81 mg, UNK

REACTIONS (1)
  - Fatigue [Unknown]
